FAERS Safety Report 8136112-9 (Version None)
Quarter: 2012Q1

REPORT INFORMATION
  Report Type: 
  Country: None (occurrence: None)
  Receive Date: 20120214
  Receipt Date: 20120130
  Transmission Date: 20120608
  Serious: No
  Sender: FDA-Public Use
  Company Number: US-COVIDIEN/TYCO HEALTHCARE/MALLINCKRODT-T201200540

PATIENT
  Sex: Female

DRUGS (12)
  1. ROXICODONE [Concomitant]
     Indication: PAIN
     Dosage: 30 MG,UP TO 8 EVERYDAY, PRN
  2. VERAPAMIL [Concomitant]
     Indication: MITRAL VALVE PROLAPSE
     Dosage: UNK, QD
  3. SYNTHROID [Concomitant]
     Indication: HYPOTHYROIDISM
     Dosage: 175 MCG, QD
  4. DILAUDID [Concomitant]
     Indication: PAIN
     Dosage: 4 MG, 2 TABLETS QID PRN
  5. HYDROCHLOROTHIAZIDE [Concomitant]
     Indication: FLUID RETENTION
     Dosage: 12.5 MG, QD
  6. VALIUM [Concomitant]
     Dosage: 10 MG, UNK
  7. FENTANYL-100 [Suspect]
     Indication: PAIN
     Dosage: 100 UG/HR, 1 FTS Q 72 HOURS
     Dates: start: 20120101
  8. XANAX [Concomitant]
     Indication: ANXIETY
     Dosage: 2 MG, ONCE - TWICE DAILY, PRN
  9. KETOROLAC TROMETHAMINE [Concomitant]
     Dosage: TAKE FOR 5 DAYS, THEN STOP FOR 2 WEEKS
  10. RESTORIL                           /00393701/ [Concomitant]
     Indication: INSOMNIA
  11. BUTALBITAL [Concomitant]
     Indication: MIGRAINE
     Dosage: UNK, PRN
  12. NORTRIPTYLINE HCL [Concomitant]
     Dosage: 25 MG, 2 EVERY BEDTIME

REACTIONS (3)
  - APPLICATION SITE PRURITUS [None]
  - APPLICATION SITE ERYTHEMA [None]
  - APPLICATION SITE VESICLES [None]
